FAERS Safety Report 5636919-3 (Version None)
Quarter: 2008Q1

REPORT INFORMATION
  Report Type: 
  Country: None (occurrence: None)
  Receive Date: 20080225
  Receipt Date: 20080212
  Transmission Date: 20080703
  Serious: Yes (Life-Threatening)
  Sender: FDA-Public Use
  Company Number: FR-ROCHE-547140

PATIENT
  Age: 77 Year
  Sex: Female

DRUGS (16)
  1. RIVOTRIL [Suspect]
     Indication: DRUG USE FOR UNKNOWN INDICATION
     Route: 048
     Dates: start: 20071109, end: 20071112
  2. RIVOTRIL [Suspect]
     Dosage: DOSAGE INCREASED PROGRESSIVELY
     Route: 048
  3. RIVOTRIL [Suspect]
     Dosage: DOSAGE REDUCED
     Route: 048
     Dates: start: 20071119, end: 20071210
  4. LYRICA [Suspect]
     Indication: NEUROPATHY PERIPHERAL
     Dosage: INDICATION REPORTED: NEUROPATHY OF THE RIGHT LOWER LIMB
     Route: 048
     Dates: start: 20071117
  5. LYRICA [Suspect]
     Dosage: DOSE INCREASED
     Route: 048
     Dates: start: 20071119, end: 20071212
  6. REVLIMID [Suspect]
     Indication: DRUG USE FOR UNKNOWN INDICATION
     Route: 065
  7. KARDEGIC [Concomitant]
     Dosage: DRUG NAME: KARDEGIC 75
     Dates: start: 20071130, end: 20071213
  8. DAFLON [Concomitant]
     Dates: start: 20071128, end: 20071203
  9. DAFLON [Concomitant]
     Dates: start: 20071210
  10. ACETAMINOPHEN [Concomitant]
  11. SKENAN [Concomitant]
  12. VITAMIN B-12 [Concomitant]
  13. INIPOMP [Concomitant]
  14. EPREX [Concomitant]
  15. CORTANCYL [Concomitant]
  16. FORLAX [Concomitant]

REACTIONS (7)
  - APATHY [None]
  - COMPUTERISED TOMOGRAM ABNORMAL [None]
  - CONFUSIONAL STATE [None]
  - DISORIENTATION [None]
  - GENERAL PHYSICAL HEALTH DETERIORATION [None]
  - ORAL INTAKE REDUCED [None]
  - SOMNOLENCE [None]
